FAERS Safety Report 14008650 (Version 1)
Quarter: 2017Q3

REPORT INFORMATION
  Report Type: Spontaneous
  Country: US (occurrence: US)
  Receive Date: 20170925
  Receipt Date: 20170925
  Transmission Date: 20171128
  Serious: No
  Sender: FDA-Public Use
  Company Number: US-OREXO US, INC.-E2B_00000038

PATIENT
  Age: 47 Year
  Sex: Female
  Weight: 75.82 kg

DRUGS (2)
  1. SUBOXONE [Concomitant]
     Active Substance: BUPRENORPHINE HYDROCHLORIDE\NALOXONE HYDROCHLORIDE
     Indication: PRODUCT USED FOR UNKNOWN INDICATION
     Dosage: 8/2 MG
  2. ZUBSOLV [Suspect]
     Active Substance: BUPRENORPHINE HYDROCHLORIDE\NALOXONE HYDROCHLORIDE
     Indication: PAIN
     Dosage: 2.9 MG/0.71
     Route: 060
     Dates: start: 20170102

REACTIONS (5)
  - Drug ineffective for unapproved indication [Unknown]
  - Cold sweat [Not Recovered/Not Resolved]
  - Drug dispensing error [Unknown]
  - Anxiety [Not Recovered/Not Resolved]
  - Piloerection [None]

NARRATIVE: CASE EVENT DATE: 20170102
